FAERS Safety Report 7262366-7 (Version None)
Quarter: 2011Q1

REPORT INFORMATION
  Report Type: 
  Country: None (occurrence: None)
  Receive Date: 20110130
  Receipt Date: 20101116
  Transmission Date: 20110831
  Serious: No
  Sender: FDA-Public Use
  Company Number: US-ABBOTT-10P-163-0685961-00

PATIENT
  Age: 51 Year
  Sex: Female

DRUGS (19)
  1. VITAMIN B-12 [Concomitant]
     Indication: PRODUCT USED FOR UNKNOWN INDICATION
  2. CALCIUM W/VITAMIN D [Concomitant]
     Indication: PRODUCT USED FOR UNKNOWN INDICATION
  3. OXYCONTIN [Concomitant]
     Indication: PRODUCT USED FOR UNKNOWN INDICATION
     Dosage: BID
  4. ALDACTOSE [Concomitant]
     Indication: ACNE
  5. PROTONICS [Concomitant]
     Indication: GASTROOESOPHAGEAL REFLUX DISEASE
  6. ASA [Concomitant]
     Indication: PRODUCT USED FOR UNKNOWN INDICATION
  7. LOTREL [Concomitant]
     Indication: BLOOD PRESSURE
  8. LIDODERM [Concomitant]
     Indication: BACK PAIN
     Dosage: PATCH
     Route: 062
  9. PATANOL [Concomitant]
     Indication: SEASONAL ALLERGY
     Dosage: EYE DROPS
  10. ZYBAN [Concomitant]
     Indication: DEPRESSION
  11. FISH OIL [Concomitant]
     Indication: PRODUCT USED FOR UNKNOWN INDICATION
  12. PLAQUENIL [Concomitant]
     Indication: RHEUMATOID ARTHRITIS
     Dosage: IN THE MORNING
  13. HYDROCHLOROTHIAZIDE [Concomitant]
     Indication: OEDEMA
  14. WOMEN'S ONE A DAY [Concomitant]
     Indication: PRODUCT USED FOR UNKNOWN INDICATION
  15. OXYCODONE [Concomitant]
     Indication: PAIN
     Dosage: BID OR TID
  16. HUMIRA [Suspect]
     Indication: RHEUMATOID ARTHRITIS
     Dates: start: 20101104
  17. FIBER [Concomitant]
     Indication: PRODUCT USED FOR UNKNOWN INDICATION
  18. ASCORBIC ACID [Concomitant]
     Indication: PRODUCT USED FOR UNKNOWN INDICATION
  19. FOLIC ACID [Concomitant]
     Indication: PRODUCT USED FOR UNKNOWN INDICATION

REACTIONS (5)
  - FEELING ABNORMAL [None]
  - PYREXIA [None]
  - FATIGUE [None]
  - NAUSEA [None]
  - PAIN [None]
